FAERS Safety Report 20983647 (Version 1)
Quarter: 2022Q2

REPORT INFORMATION
  Report Type: Report from Study
  Country: CO (occurrence: CO)
  Receive Date: 20220620
  Receipt Date: 20220620
  Transmission Date: 20220721
  Serious: Yes (Hospitalization)
  Sender: FDA-Public Use
  Company Number: CO-ABBVIE-22K-036-4434190-00

PATIENT
  Age: 76 Year
  Sex: Female
  Weight: 66 kg

DRUGS (2)
  1. VENETOCLAX [Suspect]
     Active Substance: VENETOCLAX
     Indication: Acute myeloid leukaemia
     Route: 048
     Dates: start: 20220519
  2. AZACITIDINE [Concomitant]
     Active Substance: AZACITIDINE
     Indication: Neoplasm prophylaxis
     Route: 058
     Dates: start: 202206

REACTIONS (7)
  - Delirium [Recovering/Resolving]
  - Feeling cold [Recovering/Resolving]
  - Discouragement [Recovering/Resolving]
  - Decreased appetite [Recovering/Resolving]
  - Constipation [Recovering/Resolving]
  - Urinary tract infection [Recovering/Resolving]
  - Weight decreased [Recovering/Resolving]

NARRATIVE: CASE EVENT DATE: 20220601
